FAERS Safety Report 21935750 (Version 2)
Quarter: 2023Q1

REPORT INFORMATION
  Report Type: Spontaneous
  Country: US (occurrence: US)
  Receive Date: 20230201
  Receipt Date: 20230206
  Transmission Date: 20230418
  Serious: No
  Sender: FDA-Public Use
  Company Number: US-SANOFI-01466578

PATIENT
  Sex: Female

DRUGS (23)
  1. DUPIXENT [Suspect]
     Active Substance: DUPILUMAB
     Indication: Asthma
     Dosage: 300 MG, QOW
     Route: 058
     Dates: start: 20210727
  2. DUPIXENT [Suspect]
     Active Substance: DUPILUMAB
     Dosage: 200 MG, QOW
     Route: 058
  3. DOXAZOSIN [Concomitant]
     Active Substance: DOXAZOSIN MESYLATE
     Dosage: 4 MG, QD
  4. NORCO [Concomitant]
     Active Substance: ACETAMINOPHEN\HYDROCODONE BITARTRATE
     Dosage: 10 MG, QID
  5. MORPHINE [Concomitant]
     Active Substance: MORPHINE
     Indication: Diarrhoea
     Dosage: 2 MG, PRN
  6. LYRICA [Concomitant]
     Active Substance: PREGABALIN
     Dosage: 75 MG, TID
  7. CRESTOR [Concomitant]
     Active Substance: ROSUVASTATIN CALCIUM
     Dosage: 5 MG, QD
  8. VITA B12 [VITAMIN B12 NOS] [Concomitant]
     Dosage: UNK
  9. ESTRADIOL [Concomitant]
     Active Substance: ESTRADIOL
     Dosage: 0.5 MG, QD
  10. SPIRIVA [Concomitant]
     Active Substance: TIOTROPIUM BROMIDE MONOHYDRATE
     Dosage: 2 PUFFS DAILY
  11. FERROUS SULFATE [Concomitant]
     Active Substance: FERROUS SULFATE
     Dosage: 325 MG, QD
  12. TRINTELLIX [Concomitant]
     Active Substance: VORTIOXETINE HYDROBROMIDE
     Dosage: 15 MG, QD
  13. PRILOSEC [Concomitant]
     Active Substance: OMEPRAZOLE MAGNESIUM
     Dosage: 40 MG, QD
  14. ATROVENT [Concomitant]
     Active Substance: IPRATROPIUM BROMIDE
     Dosage: UNK
  15. ALBUTEROL SULFATE [Concomitant]
     Active Substance: ALBUTEROL SULFATE
     Indication: Sleep apnoea syndrome
     Dosage: 2 PUFFS AT NIGHT
  16. SYMBICORT [Concomitant]
     Active Substance: BUDESONIDE\FORMOTEROL FUMARATE DIHYDRATE
     Dosage: 1 PUFF 2 TIMES A DAY
  17. LASIX [Concomitant]
     Active Substance: FUROSEMIDE
     Dosage: 40 MG, PRN
  18. REQUIP [Concomitant]
     Active Substance: ROPINIROLE HYDROCHLORIDE
     Dosage: 2 MG, PRN
  19. MELATONIN [Concomitant]
     Active Substance: MELATONIN
     Dosage: 5 MG, PRN
  20. COREG [Concomitant]
     Active Substance: CARVEDILOL
     Dosage: 25 MG, BID
  21. MONTELUKAST [Concomitant]
     Active Substance: MONTELUKAST SODIUM
     Dosage: 10 MG, QD
  22. ADDERALL [Concomitant]
     Active Substance: AMPHETAMINE ASPARTATE\AMPHETAMINE SULFATE\DEXTROAMPHETAMINE SACCHARATE\DEXTROAMPHETAMINE SULFATE
     Dosage: 20 MG, TID
  23. ESZOPICLONE [Concomitant]
     Active Substance: ESZOPICLONE
     Dosage: 3 MG PRN

REACTIONS (4)
  - Tremor [Not Recovered/Not Resolved]
  - Condition aggravated [Not Recovered/Not Resolved]
  - Dyskinesia [Not Recovered/Not Resolved]
  - Condition aggravated [Not Recovered/Not Resolved]
